FAERS Safety Report 23151008 (Version 2)
Quarter: 2023Q4

REPORT INFORMATION
  Report Type: Report from Study
  Country: TR (occurrence: TR)
  Receive Date: 20231106
  Receipt Date: 20231206
  Transmission Date: 20240109
  Serious: Yes (Hospitalization)
  Sender: FDA-Public Use
  Company Number: TR-ABBVIE-5478927

PATIENT
  Sex: Male
  Weight: 80 kg

DRUGS (6)
  1. CARBIDOPA\LEVODOPA [Suspect]
     Active Substance: CARBIDOPA\LEVODOPA
     Indication: Parkinson^s disease
     Dosage: MORNING DOSE (ML): 6.20 CONTINUOUS DOSE (ML): 5.00 EXTRA DOSE (ML): 1.00
     Route: 050
     Dates: start: 20181023, end: 20231101
  2. CARBIDOPA\LEVODOPA [Suspect]
     Active Substance: CARBIDOPA\LEVODOPA
  3. PIRIBEDIL [Concomitant]
     Active Substance: PIRIBEDIL
     Indication: Parkinson^s disease
     Dosage: FORM STRENGTH: 50 MILLIGRAM
     Route: 048
  4. PANTOPRAZOLE SODIUM [Concomitant]
     Active Substance: PANTOPRAZOLE SODIUM
     Indication: Prophylaxis
     Dosage: FORM STRENGTH: 40 MILLIGRAM
     Route: 048
  5. AMANTADINE SULFATE [Concomitant]
     Active Substance: AMANTADINE SULFATE
     Indication: Parkinson^s disease
     Dosage: 200 MILLIGRAM?FORM STRENGTH: 100 MILLIGRAM
     Route: 048
  6. PROPRANOLOL HYDROCHLORIDE [Concomitant]
     Active Substance: PROPRANOLOL HYDROCHLORIDE
     Indication: Hypertension
     Dosage: FORM STRENGTH: 40 MILLIGRAM
     Route: 048

REACTIONS (2)
  - Stoma site discharge [Recovered/Resolved]
  - Dermatitis [Recovered/Resolved]
